FAERS Safety Report 4513501-2 (Version None)
Quarter: 2004Q4

REPORT INFORMATION
  Report Type: 
  Country: None (occurrence: None)
  Receive Date: 20041130
  Receipt Date: 20041118
  Transmission Date: 20050328
  Serious: Yes (Other)
  Sender: FDA-Public Use
  Company Number: JP-JNJFOC-20041002826

PATIENT
  Age: 56 Year
  Sex: Male

DRUGS (3)
  1. ITRIZOLE [Suspect]
     Indication: TINEA VERSICOLOUR
     Route: 049
  2. VOGLIBOSE [Concomitant]
     Route: 049
  3. GLIMEPIRIDE [Concomitant]
     Route: 049

REACTIONS (1)
  - ATRIOVENTRICULAR BLOCK [None]
